FAERS Safety Report 7028877-4 (Version None)
Quarter: 2010Q4

REPORT INFORMATION
  Report Type: 
  Country: None (occurrence: None)
  Receive Date: 20101005
  Receipt Date: 20100927
  Transmission Date: 20110411
  Serious: Yes (Other)
  Sender: FDA-Public Use
  Company Number: US-PURDUE-USA-2010-0043491

PATIENT
  Sex: Male

DRUGS (1)
  1. OXYCONTIN [Suspect]
     Indication: PRODUCT USED FOR UNKNOWN INDICATION
     Dosage: 80 MG, BID
     Route: 048
     Dates: end: 20100418

REACTIONS (4)
  - GAIT DISTURBANCE [None]
  - INTENTIONAL DRUG MISUSE [None]
  - MYOCARDIAL INFARCTION [None]
  - PAIN [None]
